FAERS Safety Report 5305217-X (Version None)
Quarter: 2007Q1

REPORT INFORMATION
  Report Type: 
  Country: None (occurrence: None)
  Receive Date: 20070201
  Receipt Date: 20061114
  Transmission Date: 20070707
  Serious: No
  Sender: FDA-Public Use
  Company Number: 2006PV025177

PATIENT
  Age: 68 Year
  Sex: Male
  Weight: 120.2032 kg

DRUGS (4)
  1. BYETTA [Suspect]
     Indication: DIABETES MELLITUS NON-INSULIN-DEPENDENT
     Dosage: SEE IMAGE
     Route: 058
     Dates: start: 20060701
  2. METFORMIN HCL [Concomitant]
  3. HEART MEDICATION NOT OTHERWISE SPECIFIED [Concomitant]
  4. CHOLESTEROL MEDICATION NOT OTHERWISE SPECIFIED [Concomitant]

REACTIONS (4)
  - ASTHENIA [None]
  - CONDITION AGGRAVATED [None]
  - DYSPNOEA [None]
  - WEIGHT DECREASED [None]
